FAERS Safety Report 5371714-4 (Version None)
Quarter: 2007Q2

REPORT INFORMATION
  Report Type: 
  Country: None (occurrence: None)
  Receive Date: 20070619
  Receipt Date: 20070221
  Transmission Date: 20071010
  Serious: No
  Sender: FDA-Public Use
  Company Number: 2007US000435

PATIENT
  Age: 40 Year
  Sex: Female

DRUGS (2)
  1. VESICARE [Suspect]
     Indication: HYPERTONIC BLADDER
  2. DESUROL (OXOLINIC ACID) [Concomitant]

REACTIONS (1)
  - MICTURITION URGENCY [None]
